FAERS Safety Report 20702373 (Version 1)
Quarter: 2022Q2

REPORT INFORMATION
  Report Type: Spontaneous
  Country: US (occurrence: US)
  Receive Date: 20220412
  Receipt Date: 20220412
  Transmission Date: 20220721
  Serious: No
  Sender: FDA-Public Use
  Company Number: US-PFIZER INC-202101197425

PATIENT
  Age: 60 Year
  Sex: Male
  Weight: 79.819 kg

DRUGS (1)
  1. INLYTA [Suspect]
     Active Substance: AXITINIB
     Indication: Lymphoedema
     Dosage: 5 MG, 2X/DAY
     Route: 048
     Dates: start: 20210823

REACTIONS (5)
  - Feeling abnormal [Unknown]
  - Abdominal discomfort [Unknown]
  - Fatigue [Unknown]
  - Headache [Unknown]
  - Off label use [Unknown]
